FAERS Safety Report 18419805 (Version 2)
Quarter: 2020Q4

REPORT INFORMATION
  Report Type: Spontaneous
  Country: NL (occurrence: NL)
  Receive Date: 20201023
  Receipt Date: 20201030
  Transmission Date: 20210114
  Serious: Yes (Other)
  Sender: FDA-Public Use
  Company Number: NL-MYLANLABS-2020M1088872

PATIENT
  Sex: Male

DRUGS (3)
  1. LIXIANA [Concomitant]
     Active Substance: EDOXABAN TOSYLATE
     Indication: ANTICOAGULANT THERAPY
     Dosage: UNK UNK, QD
  2. VALACICLOVIR MYLAN 500 MG, FILMOMHULDE TABLETTEN [Suspect]
     Active Substance: VALACYCLOVIR HYDROCHLORIDE
     Indication: HERPES ZOSTER
     Dosage: 500 MILLIGRAM, TID
     Route: 065
     Dates: start: 20201019, end: 20201026
  3. LANOXIN [Concomitant]
     Active Substance: DIGOXIN
     Dosage: UNK UNK, QD

REACTIONS (2)
  - Pruritus [Unknown]
  - Polyneuropathy [Recovered/Resolved]

NARRATIVE: CASE EVENT DATE: 20201020
